FAERS Safety Report 6188551-3 (Version None)
Quarter: 2009Q2

REPORT INFORMATION
  Report Type: 
  Country: None (occurrence: None)
  Receive Date: 20090511
  Receipt Date: 20090511
  Transmission Date: 20091009
  Serious: Yes (Other)
  Sender: FDA-Public Use
  Company Number: None

PATIENT
  Age: 27 Year
  Sex: Male
  Weight: 99.7913 kg

DRUGS (1)
  1. FLUTICASONE PROPIONATE [Suspect]
     Indication: NASAL POLYPS
     Dosage: 1 SPRAY BID NASAL
     Route: 045
     Dates: start: 20090115, end: 20090507

REACTIONS (2)
  - GINGIVAL DISORDER [None]
  - TOOTH RESORPTION [None]
